FAERS Safety Report 5989265-2 (Version None)
Quarter: 2008Q4

REPORT INFORMATION
  Report Type: 
  Country: None (occurrence: None)
  Receive Date: 20081205
  Receipt Date: 20060713
  Transmission Date: 20090506
  Serious: Yes (Hospitalization)
  Sender: FDA-Public Use
  Company Number: 0610012

PATIENT
  Age: 3 Year
  Sex: Male

DRUGS (6)
  1. ORFADIN [Suspect]
     Indication: TYROSINAEMIA
     Dosage: 15 MG (5 MG,3 IN 1 D), ORAL
     Route: 048
     Dates: start: 20021201
  2. MILUPA TYR2 (UNKNOWN) [Concomitant]
  3. L-CARNITINE(L-CARNITINE) [Concomitant]
  4. CALCIUM (CALCIUM) [Concomitant]
  5. VITAMIN E [Concomitant]
  6. VITAMIN C (VITAMIN C) [Concomitant]

REACTIONS (7)
  - ABASIA [None]
  - ACUTE POLYNEUROPATHY [None]
  - GASTROENTERITIS [None]
  - HYPOREFLEXIA [None]
  - HYPOTONIA [None]
  - MYALGIA [None]
  - PARAESTHESIA [None]
